FAERS Safety Report 7242120-2 (Version None)
Quarter: 2011Q1

REPORT INFORMATION
  Report Type: 
  Country: None (occurrence: None)
  Receive Date: 20110118
  Receipt Date: 20110103
  Transmission Date: 20110831
  Serious: Yes (Death, Hospitalization)
  Sender: FDA-Public Use
  Company Number: 2011AC000000

PATIENT
  Age: 78 Year
  Sex: Female

DRUGS (39)
  1. ATIVAN [Concomitant]
  2. PHENERGAN HCL [Concomitant]
  3. WARFARIN [Concomitant]
  4. AVANDAMET [Concomitant]
  5. MIRAPEX [Concomitant]
  6. ESTRADIOL [Concomitant]
  7. DIGOXIN [Suspect]
     Dosage: 0.25 MG; QD; PO
     Route: 048
     Dates: start: 20070709, end: 20070912
  8. ATROVENT [Concomitant]
  9. AYGESTIN [Concomitant]
  10. ROSIGLITAZONE [Concomitant]
  11. SERTALINE [Concomitant]
  12. BISACODYL [Concomitant]
  13. DILAUDID [Concomitant]
  14. CARVEDILOL [Concomitant]
  15. OMEPREZOLE [Concomitant]
  16. LEVOTHYROXINE [Concomitant]
  17. ALPRAZOLAM [Concomitant]
  18. PRILOSEC [Concomitant]
  19. METOPROLOL TARTRATE [Concomitant]
  20. MECLIZINE [Concomitant]
  21. ACTONEL [Concomitant]
  22. LIDOCAINE [Concomitant]
  23. TOLTERODINE TARTRATE [Concomitant]
  24. PANTOPRAZOLE [Concomitant]
  25. POTASSIUM [Concomitant]
  26. ONDASTERON [Concomitant]
  27. LEVAQUIN [Concomitant]
  28. CARISOPRODOL [Concomitant]
  29. CALCIUM CARBONATE [Concomitant]
  30. METFORMIN HCL [Concomitant]
  31. MAGNESIUM [Concomitant]
  32. BUMETANIDE [Concomitant]
  33. VESICARE [Concomitant]
  34. ALBUTEROL [Concomitant]
  35. VICODIN [Concomitant]
  36. FUROSEMIDE [Concomitant]
  37. PEPCID [Concomitant]
  38. CLONAZEPAM [Concomitant]
  39. AMIODARONE [Concomitant]

REACTIONS (16)
  - RENAL FAILURE ACUTE [None]
  - MULTIPLE INJURIES [None]
  - URINARY TRACT INFECTION [None]
  - HYPOVOLAEMIA [None]
  - ANXIETY [None]
  - TOXICITY TO VARIOUS AGENTS [None]
  - ECONOMIC PROBLEM [None]
  - SINUS BRADYCARDIA [None]
  - PAIN [None]
  - DIZZINESS [None]
  - PNEUMONIA STAPHYLOCOCCAL [None]
  - ASTHENIA [None]
  - CARDIAC FAILURE CONGESTIVE [None]
  - CONDITION AGGRAVATED [None]
  - DEHYDRATION [None]
  - CARDIO-RESPIRATORY ARREST [None]
